FAERS Safety Report 5708306-0 (Version None)
Quarter: 2008Q2

REPORT INFORMATION
  Report Type: 
  Country: None (occurrence: None)
  Receive Date: 20080417
  Receipt Date: 20080409
  Transmission Date: 20081010
  Serious: Yes (Hospitalization)
  Sender: FDA-Public Use
  Company Number: US-ELI_LILLY_AND_COMPANY-US200804002444

PATIENT
  Sex: Female

DRUGS (1)
  1. FORTEO [Suspect]
     Indication: OSTEOPOROSIS
     Dates: start: 20070101

REACTIONS (7)
  - ARTHRALGIA [None]
  - ARTHRITIS [None]
  - BONE DENSITY DECREASED [None]
  - BONE DISORDER [None]
  - FIBULA FRACTURE [None]
  - OSTEOPOROSIS [None]
  - TIBIA FRACTURE [None]
